FAERS Safety Report 23572951 (Version 1)
Quarter: 2024Q1

REPORT INFORMATION
  Report Type: Spontaneous
  Country: US (occurrence: US)
  Receive Date: 20240227
  Receipt Date: 20240227
  Transmission Date: 20240410
  Serious: Yes (Hospitalization, Other)
  Sender: FDA-Public Use
  Company Number: US-SANDOZ-SDZ2024US014269

PATIENT
  Age: 76 Year
  Sex: Female

DRUGS (11)
  1. AZITHROMYCIN [Suspect]
     Active Substance: AZITHROMYCIN
     Dosage: 250 MG (3 TIMES A WEEK)
     Route: 048
  2. AZITHROMYCIN [Suspect]
     Active Substance: AZITHROMYCIN
     Indication: Mycobacterium abscessus infection
     Dosage: 500 MG (3 TIMES A WEEK)
     Route: 048
  3. AZITHROMYCIN [Suspect]
     Active Substance: AZITHROMYCIN
     Dosage: UNK
     Route: 065
     Dates: start: 2018, end: 2021
  4. AZITHROMYCIN [Suspect]
     Active Substance: AZITHROMYCIN
     Dosage: UNK (TOOK FOR 2 MONTHS)
     Route: 065
     Dates: start: 2003
  5. ADVAIR HFA [Suspect]
     Active Substance: FLUTICASONE PROPIONATE\SALMETEROL XINAFOATE
     Indication: Product used for unknown indication
     Route: 065
  6. AMIKACIN [Suspect]
     Active Substance: AMIKACIN
     Indication: Mycobacterium abscessus infection
     Dosage: 15 MG/KG (3 TIMES A WEEK)
     Route: 042
  7. AMIKACIN [Suspect]
     Active Substance: AMIKACIN
     Dosage: UNK
     Route: 055
  8. DOXYCYCLINE [Suspect]
     Active Substance: DOXYCYCLINE
     Indication: Mycobacterium abscessus infection
     Dosage: UNK (X 2WEEKS PCP)
     Route: 065
     Dates: start: 2007
  9. IMIPENEM [Suspect]
     Active Substance: IMIPENEM
     Indication: Mycobacterium abscessus infection
     Route: 042
  10. LINEZOLID [Suspect]
     Active Substance: LINEZOLID
     Indication: Mycobacterium abscessus infection
     Dosage: 600 MG, DAILY
     Route: 048
  11. TIGECYCLINE [Suspect]
     Active Substance: TIGECYCLINE
     Indication: Mycobacterium abscessus infection
     Dosage: 50 MG, Q12H
     Route: 042

REACTIONS (8)
  - Mycobacterium abscessus infection [Unknown]
  - Condition aggravated [Unknown]
  - Nausea [Unknown]
  - Vomiting [Unknown]
  - Diarrhoea [Unknown]
  - Liver function test increased [Unknown]
  - Drug ineffective [Unknown]
  - Treatment noncompliance [Unknown]
